FAERS Safety Report 5293381-0 (Version None)
Quarter: 2007Q1

REPORT INFORMATION
  Report Type: 
  Country: None (occurrence: None)
  Receive Date: 20070116
  Receipt Date: 20060606
  Transmission Date: 20070707
  Serious: Yes (Other)
  Sender: FDA-Public Use
  Company Number: HQWYE820004OCT05

PATIENT
  Age: 61 Year
  Sex: Female
  Weight: 174 kg

DRUGS (2)
  1. PREMPRO [Suspect]
  2. FEMHRT [Suspect]

REACTIONS (1)
  - BREAST CANCER [None]
